FAERS Safety Report 4316254-6 (Version None)
Quarter: 2004Q1

REPORT INFORMATION
  Report Type: 
  Country: None (occurrence: None)
  Receive Date: 20040312
  Receipt Date: 20040304
  Transmission Date: 20041129
  Serious: Yes (Other)
  Sender: FDA-Public Use
  Company Number: US-ROCHE-361059

PATIENT
  Sex: Female

DRUGS (2)
  1. CELLCEPT [Suspect]
     Route: 065
  2. PROGRAF [Concomitant]

REACTIONS (3)
  - IMMUNOSUPPRESSANT DRUG LEVEL DECREASED [None]
  - LIVER TRANSPLANT REJECTION [None]
  - NEUTROPENIA [None]
